FAERS Safety Report 5166243-7 (Version None)
Quarter: 2006Q4

REPORT INFORMATION
  Report Type: 
  Country: None (occurrence: None)
  Receive Date: 20060830
  Receipt Date: 20060605
  Transmission Date: 20070319
  Serious: No
  Sender: FDA-Public Use
  Company Number: 225957

PATIENT
  Age: 16 Year
  Sex: Male
  Weight: 110.2 kg

DRUGS (1)
  1. XOLAIR [Suspect]
     Indication: ASTHMA
     Dosage: 300 MG, Q2W, INTRAMUSCULAR
     Route: 030
     Dates: start: 20050403

REACTIONS (1)
  - HEADACHE [None]
